FAERS Safety Report 11835777 (Version 7)
Quarter: 2016Q3

REPORT INFORMATION
  Report Type: Spontaneous
  Country: US (occurrence: US)
  Receive Date: 20151215
  Receipt Date: 20160720
  Transmission Date: 20161109
  Serious: Yes (Hospitalization, Other)
  Sender: FDA-Public Use
  Company Number: US-BAYER-2015-483015

PATIENT
  Age: 49 Year
  Sex: Male

DRUGS (3)
  1. CIPRO [Suspect]
     Active Substance: CIPROFLOXACIN HYDROCHLORIDE
     Indication: BLOOD URINE PRESENT
     Dosage: 500 MG, QD
     Route: 048
     Dates: start: 20150802, end: 20150804
  2. PROBIOTICA [Suspect]
     Active Substance: PROBIOTICS NOS
     Dosage: UNK
  3. CIPRO [Suspect]
     Active Substance: CIPROFLOXACIN HYDROCHLORIDE
     Indication: BLOOD URINE PRESENT
     Dosage: UNK
     Route: 042
     Dates: start: 20150731, end: 20150801

REACTIONS (34)
  - Rash macular [None]
  - Rash pruritic [None]
  - Stevens-Johnson syndrome [None]
  - Internal haemorrhage [None]
  - Disturbance in attention [None]
  - Abdominal discomfort [None]
  - Stress [None]
  - Skin discolouration [None]
  - Mucosal dryness [None]
  - Nausea [None]
  - Skin exfoliation [None]
  - Skin burning sensation [None]
  - Rectal haemorrhage [None]
  - Weight decreased [Recovered/Resolved]
  - Weight increased [None]
  - Rash papular [None]
  - Swelling face [None]
  - Myocardial infarction [None]
  - Renal disorder [None]
  - Constipation [None]
  - Seborrhoea [None]
  - Drug hypersensitivity [None]
  - Dry skin [None]
  - Pain of skin [None]
  - Haemorrhoids [None]
  - Adverse event [None]
  - Rash [None]
  - Dehydration [None]
  - Injection site rash [None]
  - Dry skin [None]
  - Insomnia [None]
  - Fatigue [None]
  - Alopecia [None]
  - Malaise [Recovered/Resolved]

NARRATIVE: CASE EVENT DATE: 201508
